FAERS Safety Report 7786623-0 (Version None)
Quarter: 2011Q3

REPORT INFORMATION
  Report Type: 
  Country: None (occurrence: None)
  Receive Date: 20110929
  Receipt Date: 20110916
  Transmission Date: 20111222
  Serious: Yes (Other)
  Sender: FDA-Public Use
  Company Number: CA-ELI_LILLY_AND_COMPANY-CA201109004545

PATIENT
  Sex: Female

DRUGS (9)
  1. IMOVANE [Concomitant]
  2. WELLBUTRIN SR [Concomitant]
  3. EPIVAL                             /00228502/ [Concomitant]
  4. ZYPREXA [Suspect]
     Indication: BIPOLAR DISORDER
     Dosage: 5 MG, UNK
  5. LITHIUM [Concomitant]
  6. RISPERDAL [Concomitant]
  7. CITALOPRAM HYDROBROMIDE [Concomitant]
  8. ZYPREXA ZYDIS [Suspect]
     Indication: BIPOLAR DISORDER
     Dosage: 5 MG, UNK
     Dates: start: 20020328
  9. LAMOTRIGINE [Concomitant]

REACTIONS (10)
  - MYOCARDIAL INFARCTION [None]
  - LETHARGY [None]
  - WEIGHT INCREASED [None]
  - PANCREATITIS [None]
  - PALPITATIONS [None]
  - LOSS OF LIBIDO [None]
  - THALASSAEMIA BETA [None]
  - COORDINATION ABNORMAL [None]
  - SLEEP DISORDER [None]
  - MOOD ALTERED [None]
